FAERS Safety Report 5293658-9 (Version None)
Quarter: 2007Q2

REPORT INFORMATION
  Report Type: 
  Country: None (occurrence: None)
  Receive Date: 20070411
  Receipt Date: 20070402
  Transmission Date: 20071010
  Serious: Yes (Death, Hospitalization)
  Sender: FDA-Public Use
  Company Number: FR-GENENTECH-238628

PATIENT
  Sex: Female

DRUGS (12)
  1. RAPTIVA [Suspect]
     Indication: PSORIASIS
     Dosage: 1 UNK, 1/WEEK
     Route: 058
     Dates: start: 20060616, end: 20070214
  2. ANTIHYPERTENSIVE [Concomitant]
     Indication: HYPERTENSION
  3. HYDROCORTISONE [Concomitant]
     Indication: DRUG USE FOR UNKNOWN INDICATION
     Dosage: 20 MG, QD
     Route: 048
  4. DILTIAZEM [Concomitant]
     Indication: HYPERTENSION
     Dosage: 300 UNK, UNK
     Dates: start: 20061101
  5. HYTACAND [Concomitant]
     Indication: HYPERTENSION
     Dosage: 16 UNK, UNK
     Dates: start: 20061101
  6. MOXONIDINE [Concomitant]
     Indication: HYPERTENSION
     Dates: start: 20061101
  7. RELVENE [Concomitant]
     Indication: DRUG USE FOR UNKNOWN INDICATION
  8. PANTOPRAZOLE [Concomitant]
     Indication: DRUG USE FOR UNKNOWN INDICATION
  9. PARACETAMOL [Concomitant]
     Indication: DRUG USE FOR UNKNOWN INDICATION
  10. DI-ANTALVIC [Concomitant]
     Indication: MYALGIA
  11. DERMOVAL (FRANCE) [Concomitant]
     Indication: CONTRACEPTION
  12. OXYGEN [Suspect]

REACTIONS (3)
  - ACUTE PULMONARY OEDEMA [None]
  - PLATELET COUNT INCREASED [None]
  - WHITE BLOOD CELL COUNT INCREASED [None]
